FAERS Safety Report 15705245 (Version 1)
Quarter: 2018Q4

REPORT INFORMATION
  Report Type: Report from Study
  Country: FR (occurrence: FR)
  Receive Date: 20181210
  Receipt Date: 20181210
  Transmission Date: 20190205
  Serious: Yes (Hospitalization)
  Sender: FDA-Public Use
  Company Number: FR-BRISTOL-MYERS SQUIBB COMPANY-BMS-2018-113676

PATIENT
  Age: 66 Year
  Sex: Male

DRUGS (2)
  1. LEVOTHYROX [Concomitant]
     Active Substance: LEVOTHYROXINE
     Indication: PRODUCT USED FOR UNKNOWN INDICATION
     Dosage: 100 ?G, UNK
     Route: 065
  2. NIVOLUMAB [Suspect]
     Active Substance: NIVOLUMAB
     Indication: RENAL CANCER
     Dosage: 180 MG EVERY 15 DAYS
     Route: 065
     Dates: start: 20180309, end: 20180309

REACTIONS (6)
  - Hypotension [Unknown]
  - Endocrine disorder [Recovered/Resolved with Sequelae]
  - Asthenia [Unknown]
  - Rash [Unknown]
  - Hypothyroidism [Unknown]
  - Confusional state [Unknown]

NARRATIVE: CASE EVENT DATE: 20180316
